FAERS Safety Report 7555891-2 (Version None)
Quarter: 2011Q2

REPORT INFORMATION
  Report Type: 
  Country: None (occurrence: None)
  Receive Date: 20110618
  Receipt Date: 20110616
  Transmission Date: 20111010
  Serious: Yes (Life-Threatening, Hospitalization)
  Sender: FDA-Public Use
  Company Number: US-AMGEN-USACT2011030969

PATIENT
  Age: 59 Year
  Sex: Female

DRUGS (5)
  1. PEGFILGRASTIM [Suspect]
     Indication: BREAST CANCER
     Dosage: 6 MG, UNK
     Route: 058
     Dates: start: 20110203, end: 20110214
  2. CYCLOPHOSPHAMIDE [Concomitant]
     Indication: BREAST CANCER
     Dosage: 600 MG/M2, UNK
     Route: 042
     Dates: start: 20110203, end: 20110217
  3. DOXORUBICIN HCL [Concomitant]
     Indication: BREAST CANCER
     Dosage: 60 MG/M2, UNK
     Route: 042
     Dates: start: 20110203, end: 20110217
  4. BEVACIZUMAB [Concomitant]
     Indication: BREAST CANCER
     Dosage: UNK
     Dates: start: 20110203, end: 20110217
  5. PACLITAXEL [Concomitant]
     Indication: BREAST CANCER
     Dosage: 80 MG/M2, UNK
     Route: 042
     Dates: start: 20110203, end: 20110217

REACTIONS (1)
  - THROMBOSIS [None]
